FAERS Safety Report 10007238 (Version 1)
Quarter: 2014Q1

REPORT INFORMATION
  Report Type: Spontaneous
  Country: US (occurrence: None)
  Receive Date: 20140311
  Receipt Date: 20140311
  Transmission Date: 20141002
  Serious: Yes (Other)
  Sender: FDA-Public Use
  Company Number: SYM-2014-18369

PATIENT
  Age: 76 Year
  Sex: Female

DRUGS (1)
  1. XENAZINE [Suspect]
     Indication: HUNTINGTON^S DISEASE
     Dosage: 12.5 MG, 2 IN 1 D, ORAL
     Route: 048
     Dates: start: 20140302

REACTIONS (3)
  - Asthenia [None]
  - Vomiting [None]
  - Coma [None]
